FAERS Safety Report 7964738-1 (Version None)
Quarter: 2011Q4

REPORT INFORMATION
  Report Type: 
  Country: None (occurrence: None)
  Receive Date: 20111208
  Receipt Date: 20111128
  Transmission Date: 20120403
  Serious: Yes (Other)
  Sender: FDA-Public Use
  Company Number: FR-ELI_LILLY_AND_COMPANY-FR201102004269

PATIENT
  Age: 35 Year
  Sex: Male
  Weight: 85 kg

DRUGS (7)
  1. MIRTAZAPINE [Concomitant]
     Indication: DEPRESSION
     Dosage: 15 MG, QD
     Route: 048
     Dates: start: 20090101
  2. NEXIUM [Concomitant]
     Indication: HIATUS HERNIA
     Dosage: 20 MG, QD
     Route: 048
     Dates: start: 20090101
  3. LEVOTHYROXINE SODIUM [Concomitant]
     Indication: HYPOTHYROIDISM
     Dosage: 75 MG, QD
     Route: 048
     Dates: start: 20080101
  4. CYMBALTA [Suspect]
     Dosage: 120 MG, DAILY (1/D)
     Route: 048
     Dates: start: 20110202, end: 20110301
  5. CYMBALTA [Suspect]
     Dosage: 90 MG, QD
     Dates: start: 20110301
  6. CYMBALTA [Suspect]
     Indication: DEPRESSION
     Dosage: 90 MG, DAILY (1/D)
     Route: 048
  7. ESPERAL [Concomitant]
     Indication: ALCOHOL WITHDRAWAL SYNDROME

REACTIONS (1)
  - HAEMATOMA [None]
